FAERS Safety Report 22624274 (Version 1)
Quarter: 2023Q2

REPORT INFORMATION
  Report Type: Spontaneous
  Country: US (occurrence: US)
  Receive Date: 20230621
  Receipt Date: 20230621
  Transmission Date: 20230722
  Serious: No
  Sender: FDA-Public Use
  Company Number: US-GSK-US2023AMR083472

PATIENT

DRUGS (2)
  1. NUCALA [Suspect]
     Active Substance: MEPOLIZUMAB
     Indication: Product used for unknown indication
     Dosage: UNK
  2. FASENRA [Suspect]
     Active Substance: BENRALIZUMAB
     Indication: Product used for unknown indication
     Dosage: 30 MG/ML

REACTIONS (2)
  - Dyspnoea [Unknown]
  - Condition aggravated [Unknown]
